FAERS Safety Report 15391674 (Version 2)
Quarter: 2018Q4

REPORT INFORMATION
  Report Type: Report from Study
  Country: US (occurrence: US)
  Receive Date: 20180917
  Receipt Date: 20181107
  Transmission Date: 20190204
  Serious: Yes (Hospitalization, Other)
  Sender: FDA-Public Use
  Company Number: PHEH2018US038389

PATIENT
  Age: 75 Year
  Sex: Male
  Weight: 115.2 kg

DRUGS (1)
  1. ENTRESTO [Suspect]
     Active Substance: SACUBITRIL\VALSARTAN
     Indication: CARDIAC FAILURE
     Dosage: UNK UNK, Q12H
     Route: 048
     Dates: start: 20180731

REACTIONS (6)
  - Dyspnoea [Unknown]
  - Respiratory failure [Unknown]
  - Wheezing [Unknown]
  - Crepitations [Unknown]
  - Chronic obstructive pulmonary disease [Recovering/Resolving]
  - Oedema peripheral [Unknown]

NARRATIVE: CASE EVENT DATE: 20180827
